FAERS Safety Report 6216772-X (Version None)
Quarter: 2009Q2

REPORT INFORMATION
  Report Type: 
  Country: None (occurrence: None)
  Receive Date: 20090605
  Receipt Date: 20090525
  Transmission Date: 20091009
  Serious: Yes (Hospitalization, Other)
  Sender: FDA-Public Use
  Company Number: IT-ELI_LILLY_AND_COMPANY-IT200905004859

PATIENT
  Sex: Female

DRUGS (4)
  1. BYETTA [Suspect]
     Indication: TYPE 2 DIABETES MELLITUS
     Dosage: 10 UG, DAILY (1/D)
     Route: 058
     Dates: start: 20090427, end: 20090525
  2. CRESTOR [Concomitant]
     Dosage: 10 MG, UNK
     Route: 048
     Dates: start: 20080826, end: 20090525
  3. TENORMIN [Concomitant]
     Dosage: 100 MG, UNK
     Route: 048
     Dates: start: 20080826, end: 20090525
  4. COMBISARTAN [Concomitant]
     Dosage: 80 MG, UNK
     Dates: start: 20080826, end: 20090525

REACTIONS (5)
  - CEREBRAL ISCHAEMIA [None]
  - CEREBROVASCULAR ACCIDENT [None]
  - HEADACHE [None]
  - HEMIPARESIS [None]
  - VERTIGO [None]
